FAERS Safety Report 9879531 (Version 2)
Quarter: 2014Q1

REPORT INFORMATION
  Report Type: Spontaneous
  Country: ES (occurrence: ES)
  Receive Date: 20140206
  Receipt Date: 20140227
  Transmission Date: 20141002
  Serious: Yes (Hospitalization, Other)
  Sender: FDA-Public Use
  Company Number: ES-ELI_LILLY_AND_COMPANY-ES201401011301

PATIENT
  Age: 54 Year
  Sex: Female

DRUGS (5)
  1. ALIMTA [Suspect]
     Indication: LUNG ADENOCARCINOMA STAGE IV
     Dosage: 500 MG/M2, CYCLICAL
     Route: 042
     Dates: start: 201306
  2. CISPLATIN [Suspect]
     Indication: LUNG ADENOCARCINOMA STAGE IV
     Dosage: 75 MG/M2, CYCLICAL
     Route: 042
     Dates: start: 201306
  3. TRAMADOL [Concomitant]
     Indication: PAIN
     Dosage: UNK
     Dates: end: 201306
  4. FOLIC ACID [Concomitant]
  5. VITAMIN B12 [Concomitant]

REACTIONS (2)
  - Cardiac failure [Unknown]
  - Renal failure acute [Not Recovered/Not Resolved]
